FAERS Safety Report 23659788 (Version 1)
Quarter: 2024Q1

REPORT INFORMATION
  Report Type: Spontaneous
  Country: US (occurrence: US)
  Receive Date: 20240321
  Receipt Date: 20240321
  Transmission Date: 20240409
  Serious: No
  Sender: FDA-Public Use
  Company Number: US-SA-2024SA084109

PATIENT
  Age: 45 Year
  Sex: Female
  Weight: 83 kg

DRUGS (1)
  1. DUPIXENT [Suspect]
     Active Substance: DUPILUMAB
     Indication: Dermatitis atopic
     Dosage: 1 DF, QOW
     Route: 058
     Dates: start: 2022

REACTIONS (11)
  - Pharyngitis streptococcal [Unknown]
  - Fatigue [Unknown]
  - Pyrexia [Unknown]
  - Sneezing [Unknown]
  - Cough [Unknown]
  - Brain fog [Unknown]
  - Abdominal pain upper [Unknown]
  - COVID-19 [Unknown]
  - Sinusitis [Unknown]
  - Vision blurred [Unknown]
  - Inappropriate schedule of product administration [Unknown]
